FAERS Safety Report 21700526 (Version 7)
Quarter: 2023Q1

REPORT INFORMATION
  Report Type: Report from Study
  Country: KR (occurrence: KR)
  Receive Date: 20221208
  Receipt Date: 20230331
  Transmission Date: 20230417
  Serious: Yes (Death, Hospitalization)
  Sender: FDA-Public Use
  Company Number: KR-JNJFOC-20221039617

PATIENT
  Age: 65 Year
  Sex: Male
  Weight: 67.7 kg

DRUGS (35)
  1. TECLISTAMAB [Suspect]
     Active Substance: TECLISTAMAB
     Indication: Plasma cell myeloma refractory
     Route: 058
     Dates: start: 20220824, end: 20220927
  2. TECLISTAMAB [Suspect]
     Active Substance: TECLISTAMAB
     Route: 058
     Dates: start: 20220929, end: 20221004
  3. DARATUMUMAB [Suspect]
     Active Substance: DARATUMUMAB
     Indication: Plasma cell myeloma refractory
     Route: 058
     Dates: start: 20220823, end: 20221004
  4. VACRAX [ACICLOVIR] [Concomitant]
     Indication: Infection prophylaxis
     Route: 048
     Dates: start: 20220825, end: 20221010
  5. SULFAMETHOXAZOLE\TRIMETHOPRIM [Concomitant]
     Active Substance: SULFAMETHOXAZOLE\TRIMETHOPRIM
     Indication: Infection prophylaxis
     Route: 048
     Dates: start: 20220825, end: 20221010
  6. ACETAMINOPHEN [Concomitant]
     Active Substance: ACETAMINOPHEN
     Indication: COVID-19
     Route: 048
     Dates: start: 20220831
  7. TANTUM [BENZYDAMINE HYDROCHLORIDE] [Concomitant]
     Indication: COVID-19
     Route: 048
     Dates: start: 20220831
  8. CEFDITOREN [Concomitant]
     Active Substance: CEFDITOREN
     Indication: Red blood cell sedimentation rate increased
     Route: 048
     Dates: start: 20221011, end: 20221013
  9. CEFDITOREN [Concomitant]
     Active Substance: CEFDITOREN
     Indication: C-reactive protein increased
  10. IGATAN [Concomitant]
     Indication: Gingival pain
     Route: 048
  11. MEGESTROL [Concomitant]
     Active Substance: MEGESTROL
     Indication: Prophylaxis
     Route: 048
     Dates: start: 20221008, end: 20221126
  12. MEGESTROL [Concomitant]
     Active Substance: MEGESTROL
     Route: 048
     Dates: start: 20221020, end: 20221030
  13. MEGESTROL [Concomitant]
     Active Substance: MEGESTROL
     Route: 048
     Dates: start: 20221014, end: 20221020
  14. COUGH SYRUP [AMMONIUM CHLORIDE;CHLORPHENAMINE MALEATE;DIHYDROCODEINE B [Concomitant]
     Indication: COVID-19
     Route: 048
     Dates: start: 20220831
  15. LEVOFLOXACIN [Concomitant]
     Active Substance: LEVOFLOXACIN
     Indication: Infection prophylaxis
     Route: 048
     Dates: start: 20220927, end: 20221010
  16. DULOXETINE [Concomitant]
     Active Substance: DULOXETINE
     Indication: Peripheral sensory neuropathy
     Route: 048
     Dates: start: 20220913, end: 20221017
  17. DULOXETINE [Concomitant]
     Active Substance: DULOXETINE
     Route: 048
     Dates: start: 20221028, end: 20221129
  18. PREGABALIN [Concomitant]
     Active Substance: PREGABALIN
     Indication: Peripheral sensory neuropathy
     Route: 048
     Dates: start: 20220913, end: 20221017
  19. PREGABALIN [Concomitant]
     Active Substance: PREGABALIN
     Route: 048
     Dates: start: 20221028, end: 20221126
  20. PREGABALIN [Concomitant]
     Active Substance: PREGABALIN
     Dates: start: 20221110, end: 20221110
  21. LANSOPRAZOLE [Concomitant]
     Active Substance: LANSOPRAZOLE
     Indication: Gastrooesophageal reflux disease
     Route: 048
     Dates: start: 20221020, end: 20221028
  22. LANSOPRAZOLE [Concomitant]
     Active Substance: LANSOPRAZOLE
     Route: 048
     Dates: start: 20221107, end: 20221129
  23. TAMIPOOL [VITAMINS NOS] [Concomitant]
     Indication: Nutritional supplementation
     Route: 042
     Dates: start: 20221112, end: 20221116
  24. TAMIPOOL [VITAMINS NOS] [Concomitant]
     Route: 042
     Dates: start: 20221020, end: 20221020
  25. TAMIPOOL [VITAMINS NOS] [Concomitant]
     Route: 042
     Dates: start: 20221021, end: 20221023
  26. MOSAPRIDE [Concomitant]
     Active Substance: MOSAPRIDE
     Indication: Dyspepsia
     Route: 048
     Dates: start: 20221112, end: 20221126
  27. METOCLOPRAMIDE [Concomitant]
     Active Substance: METOCLOPRAMIDE
     Indication: Dyspepsia
     Route: 042
     Dates: start: 20221116, end: 20221116
  28. AMINO ACIDS\DEXTROSE\ELECTROLYTES NOS\SOYBEAN OIL [Concomitant]
     Active Substance: AMINO ACIDS\DEXTROSE\ELECTROLYTES NOS\SOYBEAN OIL
     Indication: Nutritional supplementation
     Dates: start: 20221129, end: 20221129
  29. LACTULOSE [Concomitant]
     Active Substance: LACTULOSE
     Indication: Diarrhoea
     Dosage: END DATE ENTERED AS 01-DEC-2022
     Route: 054
     Dates: start: 20221202
  30. INSULIN NOS [Concomitant]
     Active Substance: INSULIN NOS
     Indication: Hyperglycaemia
     Route: 058
     Dates: start: 20221201, end: 20221201
  31. MEGESTROL [Concomitant]
     Active Substance: MEGESTROL
     Indication: Prophylaxis
     Route: 048
     Dates: start: 20221021, end: 20221030
  32. MEGESTROL [Concomitant]
     Active Substance: MEGESTROL
     Route: 048
     Dates: start: 20221110, end: 20221127
  33. MEGESTROL [Concomitant]
     Active Substance: MEGESTROL
     Route: 048
     Dates: start: 20221014, end: 20221019
  34. MEGESTROL [Concomitant]
     Active Substance: MEGESTROL
     Route: 048
     Dates: start: 20221020, end: 20221020
  35. VICAFEROL [Concomitant]
     Indication: Osteoporosis prophylaxis
     Route: 048
     Dates: start: 20220913, end: 20221129

REACTIONS (3)
  - Hepatitis fulminant [Fatal]
  - Acute hepatic failure [Not Recovered/Not Resolved]
  - COVID-19 pneumonia [Recovered/Resolved]

NARRATIVE: CASE EVENT DATE: 20221019
